FAERS Safety Report 9390454 (Version 1)
Quarter: 2013Q3

REPORT INFORMATION
  Report Type: Spontaneous
  Country: CA (occurrence: CA)
  Receive Date: 20130709
  Receipt Date: 20130709
  Transmission Date: 20140515
  Serious: Yes (Other)
  Sender: FDA-Public Use
  Company Number: CA-PAR PHARMACEUTICAL, INC-2013SCPR006019

PATIENT
  Sex: 0

DRUGS (2)
  1. FENTANYL TRANSDERMAL SYSTEM [Suspect]
     Indication: PAIN
     Dosage: UNK, UNKNOWN
     Route: 055
  2. FENTANYL TRANSDERMAL SYSTEM [Suspect]
     Dosage: UNK, UNKNOWN
     Route: 062

REACTIONS (4)
  - Alveolar proteinosis [Recovering/Resolving]
  - Interstitial lung disease [Recovering/Resolving]
  - Incorrect route of drug administration [Unknown]
  - Anaemia [Unknown]
